FAERS Safety Report 6668569-4 (Version None)
Quarter: 2010Q2

REPORT INFORMATION
  Report Type: 
  Country: None (occurrence: None)
  Receive Date: 20100406
  Receipt Date: 20100329
  Transmission Date: 20101027
  Serious: Yes (Other)
  Sender: FDA-Public Use
  Company Number: US-PERRIGO-10US008292

PATIENT
  Sex: Female
  Weight: 55.329 kg

DRUGS (4)
  1. IBUPROFEN 200 MG BROWN 3C4 [Suspect]
     Indication: EAR PAIN
     Dosage: 400 MG, SINGLE
     Route: 048
     Dates: start: 20100325, end: 20100325
  2. IBUPROFEN 200 MG BROWN 3C4 [Suspect]
     Indication: APHTHOUS STOMATITIS
  3. DEXLANSOPRAZOLE [Concomitant]
     Indication: GASTROOESOPHAGEAL REFLUX DISEASE
     Dosage: UNK
     Route: 048
     Dates: start: 20090801
  4. MICROGESTIN 1.5/30 [Concomitant]
     Indication: CONTRACEPTION
     Dosage: UNK
     Route: 048

REACTIONS (6)
  - ABDOMINAL DISCOMFORT [None]
  - CHILLS [None]
  - CONVULSION [None]
  - HOT FLUSH [None]
  - PAIN [None]
  - PALPITATIONS [None]
